FAERS Safety Report 9916443 (Version 1)
Quarter: 2014Q1

REPORT INFORMATION
  Report Type: Spontaneous
  Country: US (occurrence: None)
  Receive Date: 20140220
  Receipt Date: 20140220
  Transmission Date: 20141002
  Serious: Yes (Life-Threatening, Hospitalization, Disabling)
  Sender: FDA-Public Use
  Company Number: None

PATIENT
  Sex: Male

DRUGS (1)
  1. TESTOSTERONE ENANTHATE [Suspect]
     Dates: start: 20120713, end: 20130717

REACTIONS (5)
  - Atrial fibrillation [None]
  - Night sweats [None]
  - Hypertension [None]
  - Heart rate increased [None]
  - Coronary artery occlusion [None]
